FAERS Safety Report 15533631 (Version 1)
Quarter: 2018Q4

REPORT INFORMATION
  Report Type: Spontaneous
  Country: US (occurrence: US)
  Receive Date: 20181019
  Receipt Date: 20181019
  Transmission Date: 20190205
  Serious: No
  Sender: FDA-Public Use
  Company Number: US-BIOGEN-2018BI00645833

PATIENT
  Sex: Female

DRUGS (1)
  1. AVONEX [Suspect]
     Active Substance: INTERFERON BETA-1A
     Indication: MULTIPLE SCLEROSIS
     Route: 065

REACTIONS (5)
  - Disability [Unknown]
  - Multiple sclerosis relapse [Unknown]
  - Drug intolerance [Unknown]
  - Mobility decreased [Unknown]
  - Bradykinesia [Unknown]

NARRATIVE: CASE EVENT DATE: 2017
